FAERS Safety Report 10157137 (Version 2)
Quarter: 2014Q2

REPORT INFORMATION
  Report Type: Spontaneous
  Country: US (occurrence: US)
  Receive Date: 20140507
  Receipt Date: 20140619
  Transmission Date: 20141212
  Serious: No
  Sender: FDA-Public Use
  Company Number: US-PFIZER INC-2014123232

PATIENT
  Age: 84 Year
  Sex: Female

DRUGS (1)
  1. SUTENT [Suspect]
     Indication: NEOPLASM
     Dosage: 12.5 MG, 2X/DAY (BID)
     Route: 048
     Dates: start: 20140118

REACTIONS (1)
  - Somnolence [Unknown]
